FAERS Safety Report 5001635-8 (Version None)
Quarter: 2006Q2

REPORT INFORMATION
  Report Type: 
  Country: None (occurrence: None)
  Receive Date: 20060515
  Receipt Date: 20060504
  Transmission Date: 20061013
  Serious: Yes (Other)
  Sender: FDA-Public Use
  Company Number: PT-JNJFOC-20060501455

PATIENT
  Sex: Male

DRUGS (2)
  1. REMICADE [Suspect]
     Indication: CROHN'S DISEASE
     Dosage: EVENT OCCURRED AFTER 4TH OR 5TH INFUSION
     Route: 042
  2. CORTICOSTEROIDS [Concomitant]
     Indication: CROHN'S DISEASE

REACTIONS (1)
  - COLON CANCER [None]
